FAERS Safety Report 8728067 (Version 2)
Quarter: 2012Q4

REPORT INFORMATION
  Report Type: 
  Country: BR (occurrence: BR)
  Receive Date: 20120817
  Receipt Date: 20120830
  Transmission Date: 20130627
  Serious: Yes (Other)
  Sender: FDA-Public Use
  Company Number: BR-AMGEN-BRASP2012051468

PATIENT
  Age: 48 Year
  Sex: Female
  Weight: 73 kg

DRUGS (5)
  1. ENBREL [Suspect]
     Indication: RHEUMATOID ARTHRITIS
     Dosage: 50 mg, once weekly
     Route: 058
     Dates: start: 20120714
  2. FUROSEMIDE [Concomitant]
     Dosage: 40 mg, 1x/day
  3. PREDNISONE [Concomitant]
     Dosage: 5 mg, 1x/day
  4. CYCLOBENZAPRINE HYDROCHLORIDE [Concomitant]
     Dosage: 10 mg, 2x/day
  5. OMEPRAZOLE [Concomitant]
     Dosage: 20 mg, 1x/day

REACTIONS (4)
  - Hypertension [Not Recovered/Not Resolved]
  - Injection site mass [Unknown]
  - Injection site erythema [Unknown]
  - Injection site pruritus [Unknown]
